FAERS Safety Report 7408789-4 (Version None)
Quarter: 2011Q2

REPORT INFORMATION
  Report Type: 
  Country: None (occurrence: None)
  Receive Date: 20110412
  Receipt Date: 20110411
  Transmission Date: 20111010
  Serious: Yes (Death, Hospitalization)
  Sender: FDA-Public Use
  Company Number: JP-AMGEN-KDC432404

PATIENT
  Age: 46 Year
  Sex: Male
  Weight: 66 kg

DRUGS (22)
  1. FLUOROURACIL [Concomitant]
     Indication: COLORECTAL CANCER
     Dosage: UNK UNK, Q2WK
     Route: 040
     Dates: start: 20100617
  2. FLUOROURACIL [Concomitant]
     Dosage: UNK UNK, Q2WK
     Route: 041
     Dates: start: 20100617
  3. RAMELTEON [Concomitant]
     Route: 048
  4. METHYCOOL [Concomitant]
     Route: 048
  5. FLUOROURACIL [Concomitant]
     Route: 040
     Dates: start: 20100617, end: 20100722
  6. BEVACIZUMAB [Concomitant]
  7. CALCIUM LEVOFOLINATE [Concomitant]
     Dosage: UNK UNK, Q2WK
     Route: 041
     Dates: start: 20100617
  8. CALCIUM LEVOFOLINATE [Concomitant]
     Route: 041
     Dates: start: 20100617, end: 20100722
  9. EMEND [Concomitant]
     Route: 048
  10. RAMELTEON [Concomitant]
     Route: 042
  11. IRINOTECAN HCL [Concomitant]
     Dosage: UNK UNK, Q2WK
     Route: 041
     Dates: start: 20100617
  12. IRINOTECAN HCL [Concomitant]
     Route: 041
     Dates: start: 20100617, end: 20100722
  13. LANSOPRAZOLE [Concomitant]
     Route: 048
  14. REBAMIPIDE [Concomitant]
     Route: 048
  15. DAIKENTYUTO [Concomitant]
     Route: 048
  16. CORTICOSTEROIDS [Concomitant]
     Indication: PROPHYLAXIS
     Route: 065
  17. DECADRON [Concomitant]
     Route: 042
  18. MINOMYCIN [Concomitant]
     Dosage: UNK UNK, UNK
     Route: 048
  19. PANITUMUMAB [Suspect]
     Indication: COLORECTAL CANCER
     Dosage: 6 MG/KG, Q2WK
     Route: 041
     Dates: start: 20100617, end: 20100722
  20. FLUOROURACIL [Concomitant]
     Route: 041
     Dates: start: 20100617, end: 20100722
  21. POLARAMINE [Concomitant]
     Route: 042
  22. ANTIHISTAMINES [Concomitant]
     Indication: PROPHYLAXIS
     Route: 065

REACTIONS (4)
  - HAEMATOCHEZIA [None]
  - WHITE BLOOD CELL COUNT DECREASED [None]
  - DEATH [None]
  - JAUNDICE [None]
